FAERS Safety Report 8472710-0 (Version None)
Quarter: 2012Q2

REPORT INFORMATION
  Report Type: 
  Country: None (occurrence: None)
  Receive Date: 20120627
  Receipt Date: 20120620
  Transmission Date: 20120825
  Serious: Yes (Death)
  Sender: FDA-Public Use
  Company Number: NL-MEDIMMUNE-MEDI-0011889

PATIENT
  Age: 8 Month
  Sex: Male
  Weight: 6.7 kg

DRUGS (3)
  1. SYNAGIS [Suspect]
     Indication: ANTIVIRAL PROPHYLAXIS
     Route: 030
     Dates: start: 20101015, end: 20101015
  2. SYNAGIS [Suspect]
     Route: 030
     Dates: start: 20101112, end: 20101112
  3. SYNAGIS [Suspect]
     Route: 030

REACTIONS (1)
  - DYSPNOEA [None]
